FAERS Safety Report 16423766 (Version 1)
Quarter: 2019Q2

REPORT INFORMATION
  Report Type: Report from Study
  Country: None (occurrence: CA)
  Receive Date: 20190613
  Receipt Date: 20190613
  Transmission Date: 20190711
  Serious: Yes (Other)
  Sender: FDA-Public Use
  Company Number: CA-ABBVIE-19K-028-2795490-00

PATIENT
  Sex: Male
  Weight: 68.6 kg

DRUGS (1)
  1. HUMIRA [Suspect]
     Active Substance: ADALIMUMAB
     Indication: JUVENILE IDIOPATHIC ARTHRITIS
     Route: 058
     Dates: start: 20180202

REACTIONS (11)
  - Bowel movement irregularity [Unknown]
  - Insomnia [Unknown]
  - Femur fracture [Recovered/Resolved]
  - Foot fracture [Unknown]
  - Abdominal pain [Unknown]
  - Anxiety [Unknown]
  - Foot fracture [Unknown]
  - Fall [Unknown]
  - Frequent bowel movements [Unknown]
  - Hyperhidrosis [Unknown]
  - Diarrhoea [Unknown]

NARRATIVE: CASE EVENT DATE: 2018
